FAERS Safety Report 5544569-2 (Version None)
Quarter: 2007Q4

REPORT INFORMATION
  Report Type: 
  Country: None (occurrence: None)
  Receive Date: 20071210
  Receipt Date: 20071205
  Transmission Date: 20080405
  Serious: Yes (Hospitalization)
  Sender: FDA-Public Use
  Company Number: US-BRISTOL-MYERS SQUIBB COMPANY-13975495

PATIENT
  Age: 65 Year
  Sex: Male
  Weight: 68 kg

DRUGS (3)
  1. CETUXIMAB [Suspect]
     Indication: COLON CANCER METASTATIC
     Dosage: FREQUENCY: WEEKLY,EVERY 3 WEEKS.
     Dates: start: 20070824, end: 20071018
  2. OXALIPLATIN [Suspect]
     Indication: COLON CANCER METASTATIC
     Dosage: FREQUENCY: WEEKLY,EVERY 3 WEEKS.
     Dates: start: 20070824, end: 20071018
  3. CAPECITABINE [Suspect]
     Indication: COLON CANCER METASTATIC
     Dosage: FREQUENCY:BID FOR DAYS 1-14.
     Dates: start: 20070824, end: 20071018

REACTIONS (3)
  - CELLULITIS [None]
  - ENTEROCUTANEOUS FISTULA [None]
  - THROMBOCYTOPENIA [None]
